FAERS Safety Report 8889261 (Version 1)
Quarter: 2012Q4

REPORT INFORMATION
  Report Type: Report from Study
  Country: US (occurrence: US)
  Receive Date: 20121106
  Receipt Date: 20121106
  Transmission Date: 20130627
  Serious: Yes (Hospitalization, Other)
  Sender: FDA-Public Use
  Company Number: US-PFIZER INC-2010163144

PATIENT
  Age: 69 Year
  Sex: Female
  Weight: 53 kg

DRUGS (7)
  1. LIPITOR [Suspect]
     Indication: HIGH CHOLESTEROL
     Dosage: 80 mg, 1x/day
     Route: 048
  2. LIPITOR [Suspect]
     Dosage: UNK, 1x/day
     Route: 048
  3. VALSARTAN [Concomitant]
     Indication: BLOOD PRESSURE HIGH
     Dosage: UNK
     Route: 048
  4. CYMBALTA [Concomitant]
     Dosage: 60 mg, 2x/day
     Route: 048
  5. LEVOTHROID [Concomitant]
     Indication: THYROID DISORDER
     Dosage: 100 ug, 1x/day
     Route: 048
     Dates: start: 1980
  6. SAVELLA [Concomitant]
     Dosage: 50 mg, 2x/day
     Route: 048
  7. DIOVAN [Concomitant]
     Indication: BLOOD PRESSURE HIGH
     Dosage: 80 mg, 1x/day

REACTIONS (6)
  - Fall [Recovered/Resolved]
  - Ear injury [Recovered/Resolved]
  - Emphysema [Recovered/Resolved]
  - Lung disorder [Recovered/Resolved]
  - Macular degeneration [Not Recovered/Not Resolved]
  - Eye disorder [Not Recovered/Not Resolved]
